FAERS Safety Report 7394958-9 (Version None)
Quarter: 2011Q2

REPORT INFORMATION
  Report Type: 
  Country: None (occurrence: None)
  Receive Date: 20110405
  Receipt Date: 20110402
  Transmission Date: 20111010
  Serious: No
  Sender: FDA-Public Use
  Company Number: US-TEVA-274705USA

PATIENT
  Sex: Female
  Weight: 49.032 kg

DRUGS (3)
  1. MUCINEX [Concomitant]
     Indication: MULTIPLE ALLERGIES
     Route: 048
  2. PLAN B ONE-STEP [Suspect]
     Indication: POST COITAL CONTRACEPTION
     Route: 048
     Dates: start: 20110327, end: 20110327
  3. ZYRTEC [Concomitant]
     Indication: MULTIPLE ALLERGIES
     Route: 048

REACTIONS (2)
  - VAGINAL DISCHARGE [None]
  - PELVIC PAIN [None]
